FAERS Safety Report 8721883 (Version 2)
Quarter: 2012Q4

REPORT INFORMATION
  Report Type: 
  Country: IT (occurrence: IT)
  Receive Date: 20120814
  Receipt Date: 20121126
  Transmission Date: 20130627
  Serious: Yes (Hospitalization)
  Sender: FDA-Public Use
  Company Number: PHHY2012IT069455

PATIENT
  Age: 64 Year
  Sex: Male

DRUGS (6)
  1. TEGRETOL [Suspect]
     Indication: HEAD INJURY
     Dosage: 2 DF Daily
     Route: 048
     Dates: start: 20101011, end: 20120703
  2. AMLODIPINE BESYLATE [Concomitant]
  3. CAPTOPRIL [Concomitant]
  4. DEPAKIN [Concomitant]
     Dosage: 300 mg, UNK
  5. DEPAKIN [Concomitant]
     Dosage: 500 mg, UNK
  6. CARDIOASPIRIN [Concomitant]

REACTIONS (4)
  - Psychomotor retardation [Recovering/Resolving]
  - Inappropriate antidiuretic hormone secretion [Recovering/Resolving]
  - Hyponatraemia [Recovering/Resolving]
  - Confusional state [Recovering/Resolving]
